FAERS Safety Report 9791788 (Version 1)
Quarter: 2014Q1

REPORT INFORMATION
  Report Type: Spontaneous
  Country: US (occurrence: US)
  Receive Date: 20140102
  Receipt Date: 20140102
  Transmission Date: 20141002
  Serious: Yes (Other)
  Sender: FDA-Public Use
  Company Number: US-BAYER-2013-158594

PATIENT
  Sex: Female

DRUGS (1)
  1. GIANVI [Suspect]

REACTIONS (2)
  - Pulmonary embolism [None]
  - Haemorrhage [None]
